FAERS Safety Report 7730500-8 (Version None)
Quarter: 2011Q3

REPORT INFORMATION
  Report Type: 
  Country: None (occurrence: None)
  Receive Date: 20110901
  Receipt Date: 20110901
  Transmission Date: 20111222
  Serious: Yes (Other)
  Sender: FDA-Public Use
  Company Number: None

PATIENT
  Sex: Female
  Weight: 54.4316 kg

DRUGS (1)
  1. LOPRESSOR [Suspect]
     Indication: HYPERTENSION
     Dosage: SMALL WHITE PILL DAILY - 2 TIMES
     Dates: start: 20100101, end: 20110101

REACTIONS (12)
  - DYSSTASIA [None]
  - HYPOAESTHESIA [None]
  - PARAESTHESIA [None]
  - AMNESIA [None]
  - HYPERTENSION [None]
  - ABASIA [None]
  - PAIN [None]
  - RENAL DISORDER [None]
  - NIGHTMARE [None]
  - MUSCLE SPASMS [None]
  - BLOOD POTASSIUM INCREASED [None]
  - DYSPHONIA [None]
